FAERS Safety Report 17118475 (Version 2)
Quarter: 2020Q1

REPORT INFORMATION
  Report Type: Report from Study
  Country: US (occurrence: US)
  Receive Date: 20191205
  Receipt Date: 20200223
  Transmission Date: 20200409
  Serious: No
  Sender: FDA-Public Use
  Company Number: NVSC2019US060350

PATIENT
  Sex: Male

DRUGS (1)
  1. COSENTYX [Suspect]
     Active Substance: SECUKINUMAB
     Indication: PSORIASIS
     Dosage: 150 MG, QW (AT WEEKS 0, 1, 2, 3, AND 4, THEN INJECT 2 PENS ONCE EVERY 4 WEEKS THEREAFTER)
     Route: 058

REACTIONS (1)
  - Incorrect dose administered [Unknown]
